FAERS Safety Report 24687583 (Version 1)
Quarter: 2024Q4

REPORT INFORMATION
  Report Type: Spontaneous
  Country: CN (occurrence: CN)
  Receive Date: 20241202
  Receipt Date: 20241202
  Transmission Date: 20250114
  Serious: Yes (Hospitalization, Other)
  Sender: NOVARTIS
  Company Number: CN-002147023-NVSC2024CN228809

PATIENT
  Age: 7 Year
  Sex: Female
  Weight: 22 kg

DRUGS (3)
  1. TOBREX [Suspect]
     Active Substance: TOBRAMYCIN
     Indication: Infection
     Dosage: 1 DRP, QD
     Route: 047
     Dates: start: 20241122, end: 20241122
  2. TOBREX [Suspect]
     Active Substance: TOBRAMYCIN
     Indication: Ocular discomfort
  3. TOBREX [Suspect]
     Active Substance: TOBRAMYCIN
     Indication: Eye pruritus

REACTIONS (16)
  - Dyspnoea [Recovered/Resolved]
  - Rash pruritic [Recovered/Resolved]
  - Tachypnoea [Unknown]
  - Abdominal pain [Recovered/Resolved]
  - Cough [Recovered/Resolved]
  - Rhinorrhoea [Recovered/Resolved]
  - Nasal obstruction [Recovered/Resolved]
  - Asthma [Recovered/Resolved]
  - Pruritus [Recovered/Resolved]
  - Urticaria [Recovered/Resolved]
  - Hypersensitivity [Recovered/Resolved]
  - Lymphocyte count increased [Unknown]
  - Platelet count increased [Unknown]
  - Blood immunoglobulin E increased [Unknown]
  - Glucose urine present [Unknown]
  - White blood cell count increased [Unknown]

NARRATIVE: CASE EVENT DATE: 20241123
